FAERS Safety Report 9617221 (Version 2)
Quarter: 2013Q4

REPORT INFORMATION
  Report Type: Spontaneous
  Country: US (occurrence: US)
  Receive Date: 20131011
  Receipt Date: 20131101
  Transmission Date: 20140711
  Serious: Yes (Hospitalization)
  Sender: FDA-Public Use
  Company Number: US-DYAX CORP.-2013DX000187

PATIENT
  Age: 24 Year
  Sex: Male

DRUGS (2)
  1. KALBITOR [Suspect]
     Indication: HEREDITARY ANGIOEDEMA
     Route: 058
     Dates: start: 20131002, end: 20131002
  2. KALBITOR [Suspect]
     Route: 058
     Dates: start: 20130226, end: 20131002

REACTIONS (1)
  - Anaphylactic reaction [Recovered/Resolved]
